FAERS Safety Report 9535370 (Version 2)
Quarter: 2013Q3

REPORT INFORMATION
  Report Type: Spontaneous
  Country: US (occurrence: US)
  Receive Date: 20130918
  Receipt Date: 20130918
  Transmission Date: 20140515
  Serious: Yes (Other)
  Sender: FDA-Public Use
  Company Number: US-NAPPMUNDI-USA-2012-0095528

PATIENT
  Age: 78 Year
  Sex: Male

DRUGS (1)
  1. DILAUDID - HP INJECTION [Suspect]
     Indication: PAIN
     Dosage: 10 MG/ML, SEE TEXT
     Route: 037
     Dates: start: 20121001

REACTIONS (1)
  - Drug withdrawal syndrome [Unknown]
